FAERS Safety Report 25616098 (Version 2)
Quarter: 2025Q4

REPORT INFORMATION
  Report Type: Spontaneous
  Country: JP (occurrence: JP)
  Receive Date: 20250729
  Receipt Date: 20251003
  Transmission Date: 20260117
  Serious: Yes (Hospitalization)
  Sender: ROCHE
  Company Number: JP-CHUGAI-2025023915AA

PATIENT
  Age: 73 Year
  Sex: Male
  Weight: 85.3 kg

DRUGS (4)
  1. TECENTRIQ [Suspect]
     Active Substance: ATEZOLIZUMAB
     Indication: Hepatocellular carcinoma
     Dosage: 1200 MILLIGRAM, ONCE/3WEEKS
     Route: 042
     Dates: start: 20241016, end: 202507
  2. TECENTRIQ [Suspect]
     Active Substance: ATEZOLIZUMAB
     Dosage: 1200 MILLIGRAM, ONCE/3WEEKS
     Route: 042
     Dates: start: 20250819
  3. AVASTIN [Suspect]
     Active Substance: BEVACIZUMAB
     Indication: Hepatocellular carcinoma
     Dosage: 1272 MILLIGRAM, ONCE/3WEEKS
     Route: 042
     Dates: start: 20241016, end: 20241217
  4. AVASTIN [Suspect]
     Active Substance: BEVACIZUMAB
     Dosage: 1272 MILLIGRAM, ONCE/3WEEKS
     Route: 042
     Dates: start: 20250422, end: 20250513

REACTIONS (1)
  - Hypopituitarism [Recovered/Resolved]

NARRATIVE: CASE EVENT DATE: 20250701
